FAERS Safety Report 5147984-4 (Version None)
Quarter: 2006Q4

REPORT INFORMATION
  Report Type: 
  Country: None (occurrence: None)
  Receive Date: 20061110
  Receipt Date: 20061030
  Transmission Date: 20070319
  Serious: Yes (Hospitalization)
  Sender: FDA-Public Use
  Company Number: 2006GB01945

PATIENT
  Age: 81 Year
  Sex: Female
  Weight: 53 kg

DRUGS (6)
  1. FELODIPINE [Suspect]
     Route: 048
     Dates: start: 20060619, end: 20060717
  2. ASPIRIN [Concomitant]
     Route: 048
     Dates: start: 20050704
  3. BISOPROLOL FUMARATE [Concomitant]
     Route: 048
     Dates: start: 20050802
  4. LISINOPRIL [Concomitant]
     Route: 048
     Dates: start: 20020829
  5. RISEDRONATE SODIUM [Concomitant]
     Dates: start: 20050704
  6. SIMVASTATIN [Concomitant]
     Route: 048
     Dates: start: 20060704

REACTIONS (3)
  - FALL [None]
  - PATELLA FRACTURE [None]
  - TIBIA FRACTURE [None]
